FAERS Safety Report 12229934 (Version 1)
Quarter: 2016Q1

REPORT INFORMATION
  Report Type: Spontaneous
  Country: US (occurrence: None)
  Receive Date: 20160331
  Receipt Date: 20160331
  Transmission Date: 20160526
  Serious: No
  Sender: FDA-Public Use
  Company Number: None

PATIENT
  Age: 73 Year
  Sex: Male
  Weight: 94.6 kg

DRUGS (1)
  1. HYDROMORPHONE [Suspect]
     Active Substance: HYDROMORPHONE
     Route: 048
     Dates: start: 20160325, end: 20160329

REACTIONS (11)
  - Lethargy [None]
  - Sedation [None]
  - Somnolence [None]
  - Respiratory depression [None]
  - Hypertension [None]
  - Atrial fibrillation [None]
  - Blood potassium decreased [None]
  - Unresponsive to stimuli [None]
  - Ventricular extrasystoles [None]
  - Blood creatinine increased [None]
  - Blood urea abnormal [None]

NARRATIVE: CASE EVENT DATE: 20160329
